FAERS Safety Report 6389553-4 (Version None)
Quarter: 2009Q4

REPORT INFORMATION
  Report Type: 
  Country: None (occurrence: None)
  Receive Date: 20091006
  Receipt Date: 20091001
  Transmission Date: 20100525
  Serious: Yes (Death, Hospitalization)
  Sender: FDA-Public Use
  Company Number: FI-ASTRAZENECA-2009SE17066

PATIENT
  Age: 70 Year

DRUGS (1)
  1. QUETIAPINE FUMARATE [Suspect]

REACTIONS (2)
  - PSYCHOTIC DISORDER [None]
  - PULMONARY EMBOLISM [None]
